FAERS Safety Report 20990975 (Version 1)
Quarter: 2022Q2

REPORT INFORMATION
  Report Type: Spontaneous
  Country: GB (occurrence: GB)
  Receive Date: 20220622
  Receipt Date: 20220622
  Transmission Date: 20220720
  Serious: Yes (Other)
  Sender: FDA-Public Use
  Company Number: GB-MHRA-TPP10393231C7450813YC1654691115842

PATIENT
  Age: 62 Year
  Sex: Male
  Weight: 73 kg

DRUGS (1)
  1. DUTASTERIDE [Suspect]
     Active Substance: DUTASTERIDE
     Indication: Product used for unknown indication
     Dosage: 500 MICROGRAM, ONCE A DAY
     Route: 048
     Dates: start: 20220128, end: 20220608

REACTIONS (1)
  - Breast disorder [Recovering/Resolving]

NARRATIVE: CASE EVENT DATE: 20220608
